FAERS Safety Report 8351012-7 (Version None)
Quarter: 2012Q2

REPORT INFORMATION
  Report Type: 
  Country: None (occurrence: None)
  Receive Date: 20120510
  Receipt Date: 20120427
  Transmission Date: 20120825
  Serious: Yes (Other)
  Sender: FDA-Public Use
  Company Number: ES-FRI-1000030365

PATIENT
  Age: 20 Year
  Sex: Female

DRUGS (1)
  1. DINOPROSTONE [Suspect]
     Indication: LABOUR INDUCTION
     Route: 067
     Dates: start: 20120416, end: 20120417

REACTIONS (2)
  - HYPERTHERMIA [None]
  - TACHYCARDIA [None]
